FAERS Safety Report 10389068 (Version 5)
Quarter: 2014Q4

REPORT INFORMATION
  Report Type: Spontaneous
  Country: US (occurrence: US)
  Receive Date: 20140817
  Receipt Date: 20141031
  Transmission Date: 20150528
  Serious: Yes (Other)
  Sender: FDA-Public Use
  Company Number: PHHY2014US091647

PATIENT
  Sex: Female

DRUGS (6)
  1. DILTIAZEM [Suspect]
     Active Substance: DILTIAZEM
     Indication: PRODUCT USED FOR UNKNOWN INDICATION
     Dosage: UNK UKN, UNK
     Route: 065
  2. LIORESAL [Suspect]
     Active Substance: BACLOFEN
     Indication: MUSCLE SPASTICITY
     Dosage: 1170.8 UG/DAY
     Route: 037
  3. OMEPRAZOLE. [Suspect]
     Active Substance: OMEPRAZOLE
     Indication: PRODUCT USED FOR UNKNOWN INDICATION
     Dosage: UNK UKN, UNK
     Route: 065
  4. CALCIUM [Suspect]
     Active Substance: CALCIUM
     Indication: PRODUCT USED FOR UNKNOWN INDICATION
     Dosage: UNK UKN, UNK
     Route: 065
  5. OXYBUTYNIN [Suspect]
     Active Substance: OXYBUTYNIN
     Indication: PRODUCT USED FOR UNKNOWN INDICATION
     Dosage: UNK UKN, UNK
     Route: 065
  6. LIORESAL [Suspect]
     Active Substance: BACLOFEN
     Dosage: 1,171.8 UG/DAY
     Route: 037

REACTIONS (4)
  - Skin erosion [Recovered/Resolved]
  - Infection [Recovered/Resolved]
  - Skin irritation [Recovered/Resolved]
  - Implant site erosion [Recovered/Resolved]
